FAERS Safety Report 4368005-7 (Version None)
Quarter: 2004Q2

REPORT INFORMATION
  Report Type: 
  Country: None (occurrence: None)
  Receive Date: 20040527
  Receipt Date: 20040414
  Transmission Date: 20050107
  Serious: No
  Sender: FDA-Public Use
  Company Number: 205916

PATIENT
  Age: 29 Year
  Sex: Female
  Weight: 102 kg

DRUGS (2)
  1. RAPTIVA [Suspect]
     Dosage: SEE IMAGE
     Route: 058
     Dates: start: 20040209, end: 20040209
  2. RAPTIVA [Suspect]
     Dosage: SEE IMAGE
     Route: 058
     Dates: start: 20040201, end: 20040414

REACTIONS (1)
  - PSORIASIS [None]
